FAERS Safety Report 4374282-9 (Version None)
Quarter: 2004Q2

REPORT INFORMATION
  Report Type: 
  Country: None (occurrence: None)
  Receive Date: 20040609
  Receipt Date: 20040607
  Transmission Date: 20050107
  Serious: Yes (Hospitalization)
  Sender: FDA-Public Use
  Company Number: US-BRISTOL-MYERS SQUIBB COMPANY-12607370

PATIENT
  Age: 82 Year
  Sex: Female

DRUGS (4)
  1. COUMADIN [Suspect]
     Dosage: COUMADIN STOPPED WHEN CONSUMER WAS ADMITTED TO HOSP. SHE HAS BEEN TAKING DRUG ^FOR A LONG TIME^
     Route: 048
     Dates: end: 20030601
  2. PREDNISONE [Interacting]
     Dates: start: 20040501
  3. LIPITOR [Concomitant]
  4. OTHERS (NOS) [Concomitant]

REACTIONS (7)
  - ABDOMINAL PAIN UPPER [None]
  - BACK PAIN [None]
  - DRUG INTERACTION [None]
  - FALL [None]
  - FRACTURED COCCYX [None]
  - HAEMORRHAGE [None]
  - SKELETAL INJURY [None]
